FAERS Safety Report 9384999 (Version 1)
Quarter: 2013Q3

REPORT INFORMATION
  Report Type: Spontaneous
  Country: US (occurrence: US)
  Receive Date: 20130705
  Receipt Date: 20130705
  Transmission Date: 20140515
  Serious: No
  Sender: FDA-Public Use
  Company Number: US-GLAXOSMITHKLINE-A1022729A

PATIENT
  Age: 52 Year
  Sex: Female

DRUGS (2)
  1. BENLYSTA [Suspect]
     Indication: PRODUCT USED FOR UNKNOWN INDICATION
     Route: 065
     Dates: start: 20130411
  2. INJECTION OF ANTIBIOTIC [Concomitant]

REACTIONS (9)
  - Rash [Unknown]
  - Headache [Unknown]
  - Migraine [Unknown]
  - Diarrhoea [Unknown]
  - Productive cough [Unknown]
  - Crepitations [Unknown]
  - Miliaria [Recovering/Resolving]
  - Hyperaesthesia [Recovering/Resolving]
  - Infusion site rash [Unknown]
